FAERS Safety Report 5416365-8 (Version None)
Quarter: 2007Q3

REPORT INFORMATION
  Report Type: 
  Country: None (occurrence: None)
  Receive Date: 20070816
  Receipt Date: 20070809
  Transmission Date: 20080115
  Serious: Yes (Other)
  Sender: FDA-Public Use
  Company Number: PHBS2007JP13338

PATIENT
  Age: 34 Year
  Sex: Male

DRUGS (1)
  1. MELLARIL [Suspect]
     Dosage: 1750 MG, ONCE/SINGLE
     Route: 048
     Dates: start: 20070805, end: 20070805

REACTIONS (2)
  - DEPRESSED LEVEL OF CONSCIOUSNESS [None]
  - INTENTIONAL OVERDOSE [None]
